FAERS Safety Report 23854070 (Version 1)
Quarter: 2024Q2

REPORT INFORMATION
  Report Type: Spontaneous
  Country: US (occurrence: None)
  Receive Date: 20240514
  Receipt Date: 20240514
  Transmission Date: 20240716
  Serious: No
  Sender: FDA-Public Use
  Company Number: None

PATIENT
  Age: 78 Year
  Sex: Male
  Weight: 96.3 kg

DRUGS (3)
  1. GAMUNEX-C [Suspect]
     Active Substance: HUMAN IMMUNOGLOBULIN G
     Indication: Chronic inflammatory demyelinating polyradiculoneuropathy
     Dosage: 50 G TRAM(S) DAILY INTRAVENOUS?
     Route: 042
     Dates: start: 20240509, end: 20240510
  2. SODIUM CHLORIDE [Concomitant]
  3. ACETAMINOPHEN [Concomitant]

REACTIONS (3)
  - Blood pressure increased [None]
  - Incorrect dose administered [None]
  - Therapy interrupted [None]

NARRATIVE: CASE EVENT DATE: 20240510
